FAERS Safety Report 5288681-4 (Version None)
Quarter: 2007Q2

REPORT INFORMATION
  Report Type: 
  Country: None (occurrence: None)
  Receive Date: 20070405
  Receipt Date: 20070322
  Transmission Date: 20071010
  Serious: Yes (Other)
  Sender: FDA-Public Use
  Company Number: US-SHR-US-2006-033590

PATIENT
  Age: 53 Year
  Sex: Female
  Weight: 81.6 kg

DRUGS (10)
  1. BETASERON [Suspect]
     Indication: SECONDARY PROGRESSIVE MULTIPLE SCLEROSIS
     Dosage: 8 MIU, EVERY 2D
     Route: 058
     Dates: start: 20020806
  2. BETASERON [Suspect]
     Dosage: 8 MIU, EVERY 2D
     Route: 058
  3. BACLOFEN [Concomitant]
     Dosage: 10 MG, UNK
  4. DEPAKOTE [Concomitant]
     Dosage: 500 MG, UNK
  5. DITROPAN XL [Concomitant]
     Dosage: 15 MG, UNK
  6. ATENOLOL [Concomitant]
     Dosage: 25 MG, UNK
  7. SEROQUEL [Concomitant]
     Dosage: 25 MG, UNK
  8. EFFEXOR [Concomitant]
     Dosage: 75 MG, UNK
  9. POTASSIUM ACETATE [Concomitant]
  10. SOLU-MEDROL [Concomitant]
     Dosage: EVERY 3 MONTHS
     Route: 042

REACTIONS (7)
  - BALANCE DISORDER [None]
  - INDURATION [None]
  - INJECTION SITE ERYTHEMA [None]
  - OEDEMA PERIPHERAL [None]
  - PHLEBITIS [None]
  - SKIN DISCOLOURATION [None]
  - SKIN EXFOLIATION [None]
